FAERS Safety Report 16219656 (Version 1)
Quarter: 2019Q2

REPORT INFORMATION
  Report Type: Spontaneous
  Country: ES (occurrence: ES)
  Receive Date: 20190420
  Receipt Date: 20190420
  Transmission Date: 20190711
  Serious: Yes (Other)
  Sender: FDA-Public Use
  Company Number: ES-AUROBINDO-AUR-APL-2019-021126

PATIENT

DRUGS (22)
  1. FENTANYL TRANSDERMAL SYSTEM [Suspect]
     Active Substance: FENTANYL
     Indication: CANCER PAIN
     Dosage: UNK, 1, 3 TIMES A DAY (75 UNK, EVERY 3 DAYS)
     Route: 065
  2. FENTANYL. [Suspect]
     Active Substance: FENTANYL
     Dosage: UNK, 100 UNK, PRN
     Route: 045
  3. FENTANYL. [Suspect]
     Active Substance: FENTANYL
     Dosage: 400 UNK
     Route: 045
  4. MEGESTROL ACETATE. [Concomitant]
     Active Substance: MEGESTROL ACETATE
     Indication: PRODUCT USED FOR UNKNOWN INDICATION
     Dosage: 160 MILLIGRAM, Q8H
     Route: 065
  5. DEXAMETHASONE. [Concomitant]
     Active Substance: DEXAMETHASONE
     Indication: PRODUCT USED FOR UNKNOWN INDICATION
     Dosage: UNKNOWN
     Route: 016
  6. PREGABALIN. [Suspect]
     Active Substance: PREGABALIN
     Indication: CANCER PAIN
     Dosage: 1 UNK, TWO TIMES A DAY, 150 UNK, Q12H
     Route: 065
  7. DULOXETINE. [Suspect]
     Active Substance: DULOXETINE
     Indication: CANCER PAIN
     Dosage: 60 MILLIGRAM, ONCE A DAY,60 MG / 24 H
     Route: 065
  8. FENTANYL TRANSDERMAL SYSTEM [Suspect]
     Active Substance: FENTANYL
     Dosage: 100 MICROGRAM
     Route: 065
  9. OMEPRAZOLE. [Suspect]
     Active Substance: OMEPRAZOLE
     Indication: CANCER PAIN
     Dosage: UNK, 20 / 24H
     Route: 065
  10. OXYCODONE [Suspect]
     Active Substance: OXYCODONE
     Indication: CANCER PAIN
     Dosage: 10 MILLIGRAM, 3 TIMES A DAY, Q8H
     Route: 016
  11. CISPLATINE [Concomitant]
     Active Substance: CISPLATIN
     Indication: LUNG ADENOCARCINOMA STAGE IV
     Dosage: UNKNOWN
     Route: 016
  12. PEMETREXED. [Concomitant]
     Active Substance: PEMETREXED
     Indication: METASTASES TO BONE
     Dosage: UNK
     Route: 065
  13. PAROXETINE. [Concomitant]
     Active Substance: PAROXETINE
     Indication: PRODUCT USED FOR UNKNOWN INDICATION
     Dosage: 20 MILLIGRAM, 20 MG/NIGHT
     Route: 065
  14. FENTANYL. [Suspect]
     Active Substance: FENTANYL
     Indication: BREAKTHROUGH PAIN
     Dosage: UNKNOWN (BARELY NECESSARY)
     Route: 045
  15. NAPROXEN SODIUM. [Suspect]
     Active Substance: NAPROXEN SODIUM
     Indication: CANCER PAIN
     Dosage: 1 UNK, TWO TIMES A DAY, 500 UNK, Q12H
     Route: 065
  16. BACLOFEN. [Suspect]
     Active Substance: BACLOFEN
     Indication: CANCER PAIN
     Dosage: 10 MILLIGRAM, TWO TIMES A DAY, , Q12H
     Route: 065
  17. FENTANYL. [Suspect]
     Active Substance: FENTANYL
     Dosage: UNK, 2-3 DOSES EVERY 24 HOURS
     Route: 045
  18. FENTANYL. [Suspect]
     Active Substance: FENTANYL
     Dosage: 800 MICROGRAM
     Route: 045
  19. ZOLEDRONIC ACID [Suspect]
     Active Substance: ZOLEDRONIC ACID
     Indication: CANCER PAIN
     Dosage: 1 UNK, UNK, 1X/4 WEEKS
     Route: 065
  20. KETAMINE [Suspect]
     Active Substance: KETAMINE
     Indication: CANCER PAIN
     Dosage: UNKNOWN
     Route: 016
  21. CISPLATINE [Concomitant]
     Active Substance: CISPLATIN
     Indication: METASTASES TO BONE
     Dosage: UNK
     Route: 065
  22. PEMETREXED. [Concomitant]
     Active Substance: PEMETREXED
     Indication: LUNG ADENOCARCINOMA STAGE IV
     Dosage: UNK
     Route: 065

REACTIONS (16)
  - Cognitive disorder [Unknown]
  - Pulmonary embolism [Unknown]
  - Depression [Recovering/Resolving]
  - Vomiting [Unknown]
  - Anxiety [Unknown]
  - Fatigue [Unknown]
  - Dyspnoea [Unknown]
  - Urinary retention [Unknown]
  - Somnolence [Unknown]
  - Delirium [Unknown]
  - Decreased appetite [Recovering/Resolving]
  - Adverse event [Unknown]
  - Sleep apnoea syndrome [Unknown]
  - Insomnia [Unknown]
  - Dysphagia [Unknown]
  - Constipation [Unknown]
